FAERS Safety Report 8028783-2 (Version None)
Quarter: 2012Q1

REPORT INFORMATION
  Report Type: 
  Country: None (occurrence: None)
  Receive Date: 20120106
  Receipt Date: 20111230
  Transmission Date: 20120608
  Serious: Yes (Hospitalization, Other)
  Sender: FDA-Public Use
  Company Number: US-MERCK-1109USA01920

PATIENT
  Age: 57 Year
  Sex: Female
  Weight: 65 kg

DRUGS (2)
  1. FOSAMAX [Suspect]
     Indication: OSTEOPOROSIS
     Route: 048
     Dates: start: 19950101, end: 20100501
  2. FOSAMAX [Suspect]
     Indication: OSTEOPENIA
     Route: 048
     Dates: start: 19950101, end: 20100501

REACTIONS (74)
  - HAEMORRHAGIC ANAEMIA [None]
  - HYPONATRAEMIA [None]
  - ANAEMIA [None]
  - INJURY [None]
  - DEPRESSION [None]
  - DEVICE FAILURE [None]
  - ESSENTIAL THROMBOCYTHAEMIA [None]
  - SPINAL DECOMPRESSION [None]
  - THROMBOCYTOSIS [None]
  - LEUKOCYTOSIS [None]
  - INFECTION [None]
  - INTERVERTEBRAL DISC PROTRUSION [None]
  - FRACTURE DISPLACEMENT [None]
  - BREAST MASS [None]
  - FEMUR FRACTURE [None]
  - ANKLE FRACTURE [None]
  - FRACTURE NONUNION [None]
  - OSTEOMYELITIS [None]
  - URINARY TRACT INFECTION [None]
  - URINARY INCONTINENCE [None]
  - ARTHROPATHY [None]
  - HAEMATOMA EVACUATION [None]
  - DEVICE RELATED INFECTION [None]
  - OSTEOPOROSIS [None]
  - INSOMNIA [None]
  - OEDEMA PERIPHERAL [None]
  - GLAUCOMA [None]
  - LOCALISED INFECTION [None]
  - SINUS TACHYCARDIA [None]
  - TENDONITIS [None]
  - NAUSEA [None]
  - LOW TURNOVER OSTEOPATHY [None]
  - HYPERTENSION [None]
  - HYPERSENSITIVITY [None]
  - SKIN ULCER [None]
  - HYPERKERATOSIS [None]
  - COLITIS [None]
  - GASTRIC POLYPS [None]
  - FIBULA FRACTURE [None]
  - PERIPROSTHETIC FRACTURE [None]
  - NODULE [None]
  - ENTEROBACTER INFECTION [None]
  - ENTEROCOLITIS INFECTIOUS [None]
  - CELLULITIS [None]
  - DERMATITIS ALLERGIC [None]
  - APPENDIX DISORDER [None]
  - GALLBLADDER DISORDER [None]
  - FALL [None]
  - PNEUMONIA [None]
  - PLATELET COUNT INCREASED [None]
  - UTERINE DISORDER [None]
  - URINARY RETENTION POSTOPERATIVE [None]
  - GASTRITIS [None]
  - BUNION [None]
  - FOOT FRACTURE [None]
  - ROTATOR CUFF SYNDROME [None]
  - TIBIA FRACTURE [None]
  - WOUND INFECTION STAPHYLOCOCCAL [None]
  - COLITIS ULCERATIVE [None]
  - OEDEMA [None]
  - DRY MOUTH [None]
  - OSTEOARTHRITIS [None]
  - ADVERSE DRUG REACTION [None]
  - CLOSTRIDIUM DIFFICILE COLITIS [None]
  - HAEMATOMA [None]
  - RESIDUAL URINE VOLUME INCREASED [None]
  - C-REACTIVE PROTEIN INCREASED [None]
  - VOMITING [None]
  - RED BLOOD CELL SEDIMENTATION RATE INCREASED [None]
  - DRUG HYPERSENSITIVITY [None]
  - PAIN IN EXTREMITY [None]
  - HYPERKALAEMIA [None]
  - GASTROOESOPHAGEAL REFLUX DISEASE [None]
  - ARTHRITIS [None]
